FAERS Safety Report 8803337 (Version 1)
Quarter: 2012Q4

REPORT INFORMATION
  Report Type: Report from Study
  Country: CA (occurrence: CA)
  Receive Date: 20120924
  Receipt Date: 20120924
  Transmission Date: 20130627
  Serious: Yes (Other)
  Sender: FDA-Public Use
  Company Number: CA-JNJFOC-20120904296

PATIENT
  Sex: Female
  Weight: 61 kg

DRUGS (6)
  1. REMICADE [Suspect]
     Indication: RHEUMATOID ARTHRITIS
     Route: 042
     Dates: start: 201112
  2. SULFASALAZINE [Concomitant]
     Route: 065
  3. FOSAMAX [Concomitant]
     Route: 065
  4. TRAZODON [Concomitant]
     Route: 065
  5. ARTHROTEC [Concomitant]
     Route: 065
  6. CONCERTA [Concomitant]
     Route: 065

REACTIONS (1)
  - Osteoporosis [Recovering/Resolving]
